FAERS Safety Report 9108218 (Version 1)
Quarter: 2013Q1

REPORT INFORMATION
  Report Type: Spontaneous
  Country: US (occurrence: US)
  Receive Date: 20130221
  Receipt Date: 20130221
  Transmission Date: 20140127
  Serious: No
  Sender: FDA-Public Use
  Company Number: US-009507513-1302USA009531

PATIENT
  Sex: Female

DRUGS (1)
  1. NASONEX [Suspect]
     Dosage: ONCE IN THE MORING AND ONCE IN THE EVENING
     Dates: start: 1998

REACTIONS (1)
  - Inappropriate schedule of drug administration [Unknown]
